FAERS Safety Report 7903437-9 (Version None)
Quarter: 2011Q4

REPORT INFORMATION
  Report Type: 
  Country: None (occurrence: None)
  Receive Date: 20111109
  Receipt Date: 20111108
  Transmission Date: 20120403
  Serious: Yes (Life-Threatening)
  Sender: FDA-Public Use
  Company Number: NZ-B.I. PHARMACEUTICALS,INC./RIDGEFIELD-2011-AU-02007AU

PATIENT
  Age: 9 Decade
  Sex: Female

DRUGS (5)
  1. METOPROLOL [Concomitant]
  2. QUINAPRIL [Concomitant]
  3. PRADAXA [Suspect]
  4. ISOSORBIDE DINITRATE [Concomitant]
  5. FUROSEMIDE [Concomitant]

REACTIONS (2)
  - HAEMOPTYSIS [None]
  - DYSPNOEA [None]
